FAERS Safety Report 21195946 (Version 1)
Quarter: 2022Q3

REPORT INFORMATION
  Report Type: Spontaneous
  Country: CH (occurrence: CH)
  Receive Date: 20220810
  Receipt Date: 20220810
  Transmission Date: 20221027
  Serious: Yes (Other)
  Sender: FDA-Public Use
  Company Number: CH-UCBSA-2019013122

PATIENT
  Sex: Male

DRUGS (2)
  1. LEVETIRACETAM [Suspect]
     Active Substance: LEVETIRACETAM
     Indication: Partial seizures
     Dosage: 300 MG, 2X/DAY (BID)
  2. LAMOTRIGINE [Concomitant]
     Active Substance: LAMOTRIGINE
     Indication: Partial seizures
     Dosage: UNKNOWN DOSE

REACTIONS (5)
  - Seizure [Unknown]
  - Limb injury [Unknown]
  - Spinal column injury [Unknown]
  - Drug intolerance [Unknown]
  - Product dose omission issue [Unknown]
